FAERS Safety Report 17148013 (Version 2)
Quarter: 2023Q2

REPORT INFORMATION
  Report Type: Spontaneous
  Country: US (occurrence: US)
  Receive Date: 20191212
  Receipt Date: 20230607
  Transmission Date: 20230721
  Serious: Yes (Other)
  Sender: FDA-Public Use
  Company Number: US-NOVARTISTESTPH-NVSC2019US066005

PATIENT
  Age: 72 Year
  Sex: Female
  Weight: 52 kg

DRUGS (4)
  1. CARBOPLATIN [Suspect]
     Active Substance: CARBOPLATIN
     Indication: Follicle centre lymphoma, follicular grade I, II, III stage IV
     Dosage: UNK
     Route: 065
  2. DEXAMETHASONE [Suspect]
     Active Substance: DEXAMETHASONE
     Indication: Follicle centre lymphoma, follicular grade I, II, III stage IV
     Dosage: UNK
     Route: 065
  3. RITUXIMAB [Suspect]
     Active Substance: RITUXIMAB
     Indication: Follicle centre lymphoma, follicular grade I, II, III stage IV
     Dosage: UNK
     Route: 065
  4. GEMCITABINE [Suspect]
     Active Substance: GEMCITABINE
     Indication: Follicle centre lymphoma, follicular grade I, II, III stage IV
     Dosage: UNK
     Route: 065

REACTIONS (2)
  - Follicle centre lymphoma, follicular grade I, II, III stage IV [Unknown]
  - Disease progression [Unknown]

NARRATIVE: CASE EVENT DATE: 20170801
